FAERS Safety Report 17587529 (Version 1)
Quarter: 2020Q1

REPORT INFORMATION
  Report Type: Spontaneous
  Country: US (occurrence: US)
  Receive Date: 20200326
  Receipt Date: 20200326
  Transmission Date: 20200409
  Serious: Yes (Hospitalization, Other)
  Sender: FDA-Public Use
  Company Number: US-PURDUE-USA-2020-0150533

PATIENT
  Sex: Male

DRUGS (5)
  1. HYDROCODONE BITARTRATE/ACETAMINOPHEN [Suspect]
     Active Substance: ACETAMINOPHEN\HYDROCODONE BITARTRATE
     Indication: PAIN
     Dosage: (10/325 MG) 1 TABLET, TID
     Route: 048
     Dates: start: 2005, end: 2011
  2. DILAUDID [Suspect]
     Active Substance: HYDROMORPHONE HYDROCHLORIDE
     Indication: PAIN
     Dosage: 4 MG, TID
     Route: 048
     Dates: start: 2008, end: 2016
  3. OPANA [Suspect]
     Active Substance: OXYMORPHONE HYDROCHLORIDE
     Indication: PAIN
     Dosage: 10 MG, TID
     Route: 048
     Dates: start: 2016, end: 2018
  4. EXALGO [Suspect]
     Active Substance: HYDROMORPHONE HYDROCHLORIDE
     Indication: PAIN
     Dosage: 16 MG, BID
     Route: 048
     Dates: start: 2018
  5. METHADONE [Suspect]
     Active Substance: METHADONE HYDROCHLORIDE
     Indication: PAIN
     Dosage: UNK
     Route: 048
     Dates: start: 2015, end: 2015

REACTIONS (8)
  - Back pain [Not Recovered/Not Resolved]
  - Memory impairment [Unknown]
  - Coma [Recovered/Resolved]
  - Arthralgia [Not Recovered/Not Resolved]
  - Drug dependence [Unknown]
  - Foot operation [Unknown]
  - Procedural complication [Not Recovered/Not Resolved]
  - Tendon graft [Unknown]

NARRATIVE: CASE EVENT DATE: 2015
